FAERS Safety Report 18964493 (Version 1)
Quarter: 2021Q1

REPORT INFORMATION
  Report Type: Spontaneous
  Country: US (occurrence: US)
  Receive Date: 20210303
  Receipt Date: 20210303
  Transmission Date: 20210420
  Serious: No
  Sender: FDA-Public Use
  Company Number: US-AMNEAL PHARMACEUTICALS-2020-AMRX-03435

PATIENT
  Sex: Male

DRUGS (2)
  1. RYTARY [Suspect]
     Active Substance: CARBIDOPA\LEVODOPA
     Dosage: 1 CAPSULES, 6 /DAY, 61.25MG/245MG
     Route: 065
     Dates: start: 202002
  2. RYTARY [Suspect]
     Active Substance: CARBIDOPA\LEVODOPA
     Indication: PRODUCT USED FOR UNKNOWN INDICATION
     Dosage: 1 CAPSULES, 6 /DAY, 36.25MG/145MG
     Route: 065
     Dates: start: 202002

REACTIONS (5)
  - Dyspnoea [Unknown]
  - Hyperhidrosis [Unknown]
  - Therapeutic response shortened [Not Recovered/Not Resolved]
  - Anxiety [Unknown]
  - Delusion [Unknown]

NARRATIVE: CASE EVENT DATE: 2020
